FAERS Safety Report 5112928-8 (Version None)
Quarter: 2006Q3

REPORT INFORMATION
  Report Type: 
  Country: None (occurrence: None)
  Receive Date: 20060921
  Receipt Date: 20060921
  Transmission Date: 20061208
  Serious: No
  Sender: FDA-Public Use
  Company Number: None

PATIENT
  Sex: Male
  Weight: 71.4 kg

DRUGS (5)
  1. LORAZEPAM [Suspect]
     Indication: SEDATION
     Dosage: 1 MG IV
     Route: 042
     Dates: start: 20060614, end: 20060622
  2. CEFAZOLIN [Concomitant]
  3. CHLORAL HYDRATE [Concomitant]
  4. DEPHENHYDRAMINE [Concomitant]
  5. LANSOPRAZOLE [Concomitant]

REACTIONS (5)
  - CARDIO-RESPIRATORY ARREST [None]
  - HYPOTENSION [None]
  - LOSS OF CONSCIOUSNESS [None]
  - MYDRIASIS [None]
  - PUPIL FIXED [None]
